FAERS Safety Report 16469848 (Version 3)
Quarter: 2021Q1

REPORT INFORMATION
  Report Type: Report from Study
  Country: US (occurrence: US)
  Receive Date: 20190624
  Receipt Date: 20210121
  Transmission Date: 20210419
  Serious: No
  Sender: FDA-Public Use
  Company Number: US-SA-2019SA169363

PATIENT
  Age: 61 Year
  Sex: Female

DRUGS (3)
  1. BIMATOPROST. [Suspect]
     Active Substance: BIMATOPROST
     Indication: OCULAR HYPERAEMIA
     Dosage: UNK
     Dates: start: 2019, end: 201911
  2. TERIFLUNOMIDE. [Suspect]
     Active Substance: TERIFLUNOMIDE
     Indication: MULTIPLE SCLEROSIS
     Dosage: 14 MG, QD
     Route: 048
     Dates: start: 20190508
  3. BIMATOPROST. [Suspect]
     Active Substance: BIMATOPROST
     Indication: DRY EYE

REACTIONS (6)
  - Hypertension [Recovering/Resolving]
  - Ocular hyperaemia [Unknown]
  - Diarrhoea [Not Recovered/Not Resolved]
  - Eye irritation [Recovered/Resolved]
  - Gastrointestinal disorder [Unknown]
  - Dry eye [Unknown]

NARRATIVE: CASE EVENT DATE: 2019
